FAERS Safety Report 8389589 (Version 2)
Quarter: 2015Q3

REPORT INFORMATION
  Report Type: Report from Study
  Country: US (occurrence: US)
  Receive Date: 20120203
  Receipt Date: 20150701
  Transmission Date: 20151125
  Serious: Yes (Death)
  Sender: FDA-Public Use
  Company Number: US-ROCHE-1036210

PATIENT
  Sex: Male

DRUGS (7)
  1. MAGNESIUM SULFATE. [Concomitant]
     Active Substance: MAGNESIUM SULFATE
     Route: 065
  2. CALCIUM GLUCONATE. [Concomitant]
     Active Substance: CALCIUM GLUCONATE
     Route: 065
  3. OXALIPLATIN. [Concomitant]
     Active Substance: OXALIPLATIN
     Route: 065
  4. ANZEMET [Concomitant]
     Active Substance: DOLASETRON MESYLATE
     Route: 065
  5. 5-FLUOROURACIL [Concomitant]
     Active Substance: FLUOROURACIL
  6. AVASTIN [Suspect]
     Active Substance: BEVACIZUMAB
     Indication: COLON CANCER
     Route: 065
  7. DECADRON [Concomitant]
     Active Substance: DEXAMETHASONE
     Route: 065

REACTIONS (3)
  - Death [Fatal]
  - Hyperhidrosis [Recovered/Resolved]
  - Feeling hot [Recovered/Resolved]
